FAERS Safety Report 9759691 (Version 2)
Quarter: 2015Q3

REPORT INFORMATION
  Report Type: Spontaneous
  Country: US (occurrence: US)
  Receive Date: 20131216
  Receipt Date: 20150806
  Transmission Date: 20151125
  Serious: No
  Sender: FDA-Public Use
  Company Number: US-GILEAD-2010-0028639

PATIENT
  Age: 77 Year
  Sex: Male
  Weight: 87.09 kg

DRUGS (18)
  1. CALCIUM+D [Concomitant]
  2. VITAMIN C [Concomitant]
     Active Substance: ASCORBIC ACID
  3. LUNESTA [Concomitant]
     Active Substance: ESZOPICLONE
  4. AMIODARONE HCL [Concomitant]
     Active Substance: AMIODARONE HYDROCHLORIDE
  5. COUMADIN [Concomitant]
     Active Substance: WARFARIN SODIUM
  6. ASPIRIN. [Concomitant]
     Active Substance: ASPIRIN
  7. LIPITOR [Concomitant]
     Active Substance: ATORVASTATIN CALCIUM
  8. CYCLOSPORINE. [Concomitant]
     Active Substance: CYCLOSPORINE
  9. EFFEXOR [Concomitant]
     Active Substance: VENLAFAXINE HYDROCHLORIDE
  10. TOPROL XL [Concomitant]
     Active Substance: METOPROLOL SUCCINATE
  11. METOPROLOL [Concomitant]
     Active Substance: METOPROLOL
  12. AMOXICILLIN. [Concomitant]
     Active Substance: AMOXICILLIN
  13. LUMIGAN [Concomitant]
     Active Substance: BIMATOPROST
  14. REMERON [Concomitant]
     Active Substance: MIRTAZAPINE
  15. CELLCEPT [Concomitant]
     Active Substance: MYCOPHENOLATE MOFETIL\MYCOPHENOLATE MOFETIL HYDROCHLORIDE
  16. LETAIRIS [Suspect]
     Active Substance: AMBRISENTAN
     Indication: PULMONARY ARTERIAL HYPERTENSION
     Route: 048
     Dates: start: 20100119
  17. AZOPT [Concomitant]
     Active Substance: BRINZOLAMIDE
  18. MULTIVITAMIN [Concomitant]
     Active Substance: VITAMINS

REACTIONS (2)
  - Hiccups [Unknown]
  - Dyspnoea [Unknown]
